FAERS Safety Report 9757396 (Version 2)
Quarter: 2014Q1

REPORT INFORMATION
  Report Type: Spontaneous
  Country: US (occurrence: US)
  Receive Date: 20131214
  Receipt Date: 20140203
  Transmission Date: 20141002
  Serious: No
  Sender: FDA-Public Use
  Company Number: US-009507513-1312USA001036

PATIENT
  Age: 18 Year
  Sex: Female

DRUGS (2)
  1. NEXPLANON [Suspect]
     Indication: CONTRACEPTION
     Dosage: 1 ROD FOR THREE WEEKS
     Route: 059
     Dates: start: 20130408
  2. DIETARY SUPPLEMENT (UNSPECIFIED) [Concomitant]

REACTIONS (5)
  - Haemorrhage [Unknown]
  - Muscle spasms [Unknown]
  - Headache [Unknown]
  - Asthenia [Unknown]
  - Inappropriate schedule of drug administration [Unknown]
